FAERS Safety Report 12643084 (Version 1)
Quarter: 2016Q3

REPORT INFORMATION
  Report Type: Spontaneous
  Country: US (occurrence: US)
  Receive Date: 20160811
  Receipt Date: 20160811
  Transmission Date: 20161109
  Serious: No
  Sender: FDA-Public Use
  Company Number: US-BIOGEN-2016BI00276581

PATIENT
  Sex: Female

DRUGS (2)
  1. BIOTIN [Concomitant]
     Active Substance: BIOTIN
     Indication: PRODUCT USED FOR UNKNOWN INDICATION
     Route: 065
  2. AVONEX [Suspect]
     Active Substance: INTERFERON BETA-1A
     Indication: MULTIPLE SCLEROSIS
     Route: 065

REACTIONS (13)
  - Trichorrhexis [Unknown]
  - Dysstasia [Unknown]
  - Palpitations [Unknown]
  - Dyspepsia [Unknown]
  - Eye pain [Unknown]
  - Nausea [Unknown]
  - Migraine [Unknown]
  - Injection site warmth [Unknown]
  - Fatigue [Unknown]
  - Asthenia [Unknown]
  - Depression [Unknown]
  - Toothache [Unknown]
  - Injection site bruising [Unknown]
